FAERS Safety Report 7789626-5 (Version None)
Quarter: 2011Q3

REPORT INFORMATION
  Report Type: 
  Country: None (occurrence: None)
  Receive Date: 20110930
  Receipt Date: 20110927
  Transmission Date: 20111222
  Serious: Yes (Hospitalization)
  Sender: FDA-Public Use
  Company Number: AU-MERCK-1108USA00036

PATIENT
  Age: 75 Year
  Sex: Female

DRUGS (6)
  1. DIAMICRON [Concomitant]
     Indication: TYPE 2 DIABETES MELLITUS
     Route: 065
     Dates: start: 20080101
  2. MICARDIS [Concomitant]
     Indication: HYPERTENSION
     Route: 065
     Dates: start: 20100201
  3. VYTORIN [Suspect]
     Indication: LIPIDS ABNORMAL
     Route: 048
     Dates: start: 20101202, end: 20110701
  4. SIMVASTATIN [Concomitant]
     Route: 048
     Dates: start: 19940101, end: 20101201
  5. METFORMIN HCL [Concomitant]
     Indication: TYPE 2 DIABETES MELLITUS
     Route: 065
     Dates: start: 20050101
  6. CLOPIDOGREL [Concomitant]
     Indication: TRANSIENT ISCHAEMIC ATTACK
     Route: 065
     Dates: start: 20080101

REACTIONS (5)
  - DRUG INEFFECTIVE [None]
  - MYOSITIS [None]
  - LOW DENSITY LIPOPROTEIN INCREASED [None]
  - MYALGIA [None]
  - BLOOD CREATINE PHOSPHOKINASE INCREASED [None]
